FAERS Safety Report 5084582-5 (Version None)
Quarter: 2006Q3

REPORT INFORMATION
  Report Type: 
  Country: None (occurrence: None)
  Receive Date: 20060821
  Receipt Date: 20060724
  Transmission Date: 20061208
  Serious: Yes (Other)
  Sender: FDA-Public Use
  Company Number: 2006UW15068

PATIENT
  Age: 46 Year
  Sex: Female
  Weight: 78.9 kg

DRUGS (3)
  1. SEROQUEL [Suspect]
     Indication: HOT FLUSH
     Route: 048
     Dates: start: 20060719
  2. PRILOSEC [Concomitant]
     Route: 048
  3. ASPIRIN [Concomitant]

REACTIONS (3)
  - FATIGUE [None]
  - LOSS OF CONSCIOUSNESS [None]
  - RESTLESS LEGS SYNDROME [None]
